FAERS Safety Report 17627788 (Version 1)
Quarter: 2020Q2

REPORT INFORMATION
  Report Type: Spontaneous
  Country: US (occurrence: US)
  Receive Date: 20200405
  Receipt Date: 20200405
  Transmission Date: 20200713
  Serious: No
  Sender: FDA-Public Use
  Company Number: US-ASTRAZENECA-2020SE37847

PATIENT
  Age: 24746 Day
  Sex: Female
  Weight: 102.1 kg

DRUGS (9)
  1. LIVALO [Concomitant]
     Active Substance: PITAVASTATIN CALCIUM
     Indication: BLOOD CHOLESTEROL
     Route: 048
     Dates: start: 2019
  2. REPATHA [Concomitant]
     Active Substance: EVOLOCUMAB
     Indication: BLOOD CHOLESTEROL
     Route: 058
  3. VALSARTAN HYDROCLORATHAZIDE [Concomitant]
     Indication: BLOOD CHOLESTEROL
     Route: 048
  4. ASPIRIN. [Concomitant]
     Active Substance: ASPIRIN
     Indication: CARDIAC DISORDER
     Route: 048
  5. CLOPEDIGREL [Concomitant]
     Indication: CARDIAC DISORDER
     Route: 048
  6. METFORMIN [Concomitant]
     Active Substance: METFORMIN HYDROCHLORIDE
     Indication: TYPE 2 DIABETES MELLITUS
     Route: 048
     Dates: start: 2015
  7. MELOXICAM. [Concomitant]
     Active Substance: MELOXICAM
     Indication: BLOOD CHOLESTEROL
     Route: 048
  8. CARVIDELOL [Concomitant]
     Indication: CARDIAC DISORDER
     Route: 048
  9. BYDUREON BCISE [Suspect]
     Active Substance: EXENATIDE
     Indication: TYPE 2 DIABETES MELLITUS
     Route: 058
     Dates: start: 202002, end: 202003

REACTIONS (7)
  - Pigmentation disorder [Recovered/Resolved]
  - Throat irritation [Recovered/Resolved]
  - Cough [Recovered/Resolved]
  - Injection site swelling [Recovered/Resolved]
  - Dyspnoea [Recovered/Resolved]
  - Pruritus [Recovered/Resolved]
  - Injection site nodule [Recovered/Resolved]

NARRATIVE: CASE EVENT DATE: 202002
